FAERS Safety Report 6984567-5 (Version None)
Quarter: 2010Q3

REPORT INFORMATION
  Report Type: 
  Country: None (occurrence: None)
  Receive Date: 20100915
  Receipt Date: 20100903
  Transmission Date: 20110219
  Serious: Yes (Other)
  Sender: FDA-Public Use
  Company Number: ES-PFIZER INC-2010092207

PATIENT
  Age: 43 Year
  Sex: Female
  Weight: 67 kg

DRUGS (2)
  1. SUTENT [Suspect]
     Indication: THYROID CANCER
     Dosage: 37.5 MG, 1X/DAY
     Route: 048
     Dates: start: 20091228
  2. IBUPROFEN [Concomitant]
     Indication: PAIN
     Dosage: UNK

REACTIONS (1)
  - HEPATITIS [None]
